FAERS Safety Report 8819958 (Version 1)
Quarter: 2012Q4

REPORT INFORMATION
  Report Type: 
  Country: BR (occurrence: BR)
  Receive Date: 20121001
  Receipt Date: 20121001
  Transmission Date: 20130627
  Serious: Yes (Hospitalization)
  Sender: FDA-Public Use
  Company Number: BR-PFIZER INC-2012239905

PATIENT
  Age: 33 Year
  Sex: Male

DRUGS (1)
  1. DALACIN [Suspect]
     Dosage: UNK

REACTIONS (2)
  - Lymphadenopathy [Unknown]
  - Drug eruption [Unknown]
